FAERS Safety Report 7913506-5 (Version None)
Quarter: 2011Q4

REPORT INFORMATION
  Report Type: 
  Country: None (occurrence: None)
  Receive Date: 20111110
  Receipt Date: 20111027
  Transmission Date: 20120403
  Serious: Yes (Hospitalization)
  Sender: FDA-Public Use
  Company Number: 1000023478

PATIENT
  Age: 67 Year
  Sex: Male
  Weight: 57 kg

DRUGS (7)
  1. SPIRIVA (TIOTROPIUM BROMIDE) (18 MICROGRAM) (TIOTROPIUM BROMIDE) [Concomitant]
  2. OXYGEN (OXYGEN) (OXYGEN) [Concomitant]
  3. SIMVASTATIN [Concomitant]
  4. BERODUAL (FENOTEROL, IPRATROPIUM)(FENOTEROL, IPRATROPIUM) [Concomitant]
  5. MELPERON (MELPERONE HYDROCHLORIDE) (MELPERONE HYDROCHLORIDE) [Concomitant]
  6. ROFLUMILAST(ROFLUMILAST)(500 MICROGRAM, TABLETS) [Suspect]
     Indication: CHRONIC OBSTRUCTIVE PULMONARY DISEASE
     Dosage: 12 OR 13 TABLETS
     Dates: start: 20110826, end: 20110826
  7. ALCOHOL (ETHANOL) [Suspect]
     Dates: start: 20110826, end: 20110826

REACTIONS (5)
  - RED BLOOD CELL COUNT DECREASED [None]
  - HAEMOGLOBIN DECREASED [None]
  - SOMNOLENCE [None]
  - INTENTIONAL OVERDOSE [None]
  - SUICIDE ATTEMPT [None]
